FAERS Safety Report 8789425 (Version 1)
Quarter: 2012Q4

REPORT INFORMATION
  Report Type: Spontaneous
  Country: JP (occurrence: None)
  Receive Date: 20120905
  Receipt Date: 20120905
  Transmission Date: 20130627
  Serious: Yes (Hospitalization)
  Sender: FDA-Public Use
  Company Number: TCI2012A04266

PATIENT
  Age: 38 Year
  Sex: Female

DRUGS (19)
  1. ROZEREM [Suspect]
     Indication: INSOMNIA
     Route: 048
     Dates: start: 20120703, end: 20120731
  2. AMIODARONE HYDROCHLORIDE [Suspect]
     Route: 048
     Dates: start: 20120703, end: 20120730
  3. AMIODARONE HYDROCHLORIDE [Suspect]
  4. EURODIN [Concomitant]
  5. MYSLEE (ZOLPIDEM TARTRATE) [Concomitant]
  6. AMOBAN (ZOPICLONE) [Concomitant]
  7. ROHYPNOL (FLUNITRAZEPAM) [Concomitant]
  8. DORAL (QUAZEPAM) [Concomitant]
  9. SERLOQUEL (QUETIAPINE FUMARATE) [Concomitant]
  10. LEXOTAN (BROMAZEPAM) [Concomitant]
  11. PAXIL (PAROXETINE HYDROCHLORIDE) [Concomitant]
  12. JZOLOFT (SERTRALINE HYDROCHLORIDE [Concomitant]
  13. REFLEX (MIRTAZAPINE) [Concomitant]
  14. CRESTOR (ROSUVASTATIN CALCIUM) [Concomitant]
  15. RENIVACE (ENALAPRIL MALEATE) [Concomitant]
  16. LANIRAPID (METILDIGOXIN) [Concomitant]
  17. LASIX (FUROSEMIDE) [Concomitant]
  18. MAGMITT (MAGNESIUM OXIDE) [Concomitant]
  19. ALDACTONE-A (SPIRONOLACTONE) [Concomitant]

REACTIONS (3)
  - Blood creatine phosphokinase increased [None]
  - Cough [None]
  - Oropharyngeal pain [None]
